FAERS Safety Report 18072669 (Version 1)
Quarter: 2020Q3

REPORT INFORMATION
  Report Type: Spontaneous
  Country: US (occurrence: US)
  Receive Date: 20200725
  Receipt Date: 20200725
  Transmission Date: 20201103
  Serious: No
  Sender: FDA-Public Use
  Company Number: None

PATIENT
  Age: 45 Year
  Sex: Male

DRUGS (1)
  1. TALTZ [Suspect]
     Active Substance: IXEKIZUMAB
     Indication: PSORIASIS
     Route: 058
     Dates: start: 20190606

REACTIONS (4)
  - Therapy interrupted [None]
  - Needle issue [None]
  - Wrong technique in device usage process [None]
  - Device malfunction [None]

NARRATIVE: CASE EVENT DATE: 202007
